FAERS Safety Report 8065735-0 (Version None)
Quarter: 2012Q1

REPORT INFORMATION
  Report Type: 
  Country: None (occurrence: None)
  Receive Date: 20120124
  Receipt Date: 20120117
  Transmission Date: 20120608
  Serious: Yes (Death)
  Sender: FDA-Public Use
  Company Number: ES-SANOFI-AVENTIS-2012SA003940

PATIENT
  Age: 85 Year
  Sex: Male

DRUGS (1)
  1. CABAZITAXEL [Suspect]

REACTIONS (1)
  - PANCYTOPENIA [None]
